FAERS Safety Report 6995895-1 (Version None)
Quarter: 2010Q3

REPORT INFORMATION
  Report Type: 
  Country: None (occurrence: None)
  Receive Date: 20100918
  Receipt Date: 20081031
  Transmission Date: 20110219
  Serious: No
  Sender: FDA-Public Use
  Company Number: US-WYE-H06651908

PATIENT
  Age: 39 Year
  Sex: Female
  Weight: 74.91 kg

DRUGS (7)
  1. EFFEXOR XR [Suspect]
     Indication: DEPRESSION
     Route: 048
     Dates: start: 20080919, end: 20081002
  2. EFFEXOR XR [Suspect]
     Indication: ANXIETY
     Route: 048
     Dates: start: 20081003, end: 20081016
  3. EFFEXOR XR [Suspect]
     Route: 048
     Dates: start: 20081017
  4. SEROQUEL [Concomitant]
  5. EFFEXOR [Suspect]
     Indication: DEPRESSION
     Route: 048
     Dates: start: 20080905, end: 20080918
  6. EFFEXOR [Suspect]
     Indication: ANXIETY
  7. ATIVAN [Concomitant]

REACTIONS (6)
  - ANXIETY [None]
  - CONDITION AGGRAVATED [None]
  - DEPRESSION [None]
  - DRUG INEFFECTIVE [None]
  - FEELING ABNORMAL [None]
  - NERVOUSNESS [None]
